FAERS Safety Report 9768624 (Version 3)
Quarter: 2014Q1

REPORT INFORMATION
  Report Type: Spontaneous
  Country: CA (occurrence: CA)
  Receive Date: 20131218
  Receipt Date: 20140228
  Transmission Date: 20141002
  Serious: Yes (Other)
  Sender: FDA-Public Use
  Company Number: CA-PFIZER INC-2013358690

PATIENT
  Age: 73 Year
  Sex: Female
  Weight: 68 kg

DRUGS (6)
  1. GABAPENTIN [Suspect]
     Indication: HERPES ZOSTER
     Dosage: 400 UNK, 4X/DAY
     Dates: start: 201310, end: 201311
  2. GABAPENTIN [Suspect]
     Indication: PAIN
  3. GABAPENTIN [Suspect]
     Indication: NEURALGIA
  4. FLUVIRAL [Concomitant]
     Indication: IMMUNISATION
     Dosage: UNK
     Dates: start: 20131009, end: 20131009
  5. PNEUMOVAX 23 [Concomitant]
     Indication: IMMUNISATION
     Dosage: UNK
     Dates: start: 20131002, end: 20131002
  6. LYRICA [Concomitant]
     Dosage: 75 MG, UNK
     Dates: start: 20131009

REACTIONS (2)
  - Intraductal proliferative breast lesion [Not Recovered/Not Resolved]
  - Drug ineffective [Unknown]
